FAERS Safety Report 22096383 (Version 1)
Quarter: 2023Q1

REPORT INFORMATION
  Report Type: Spontaneous
  Country: US (occurrence: US)
  Receive Date: 20230315
  Receipt Date: 20230315
  Transmission Date: 20230418
  Serious: Yes (Hospitalization, Other)
  Sender: FDA-Public Use
  Company Number: US-MLMSERVICE-20230213-4100053-1

PATIENT

DRUGS (8)
  1. DIFLUPREDNATE [Suspect]
     Active Substance: DIFLUPREDNATE
     Indication: Uveitis
     Dosage: UNK
     Route: 061
  2. TRIAMCINOLONE [Suspect]
     Active Substance: TRIAMCINOLONE
     Indication: Uveitis
     Dosage: UNK (SUB-TENON?S TRIAMCINOLONE/INTRAVITREAL TRIAMCINOLONE)
     Route: 065
  3. TRIAMCINOLONE [Suspect]
     Active Substance: TRIAMCINOLONE
     Indication: Disease recurrence
  4. DEXAMETHASONE [Suspect]
     Active Substance: DEXAMETHASONE
     Indication: Uveitis
     Dosage: UNK (INTRAVITREAL DEXAMETHASONE IMPLANT)
     Route: 065
  5. DEXAMETHASONE [Suspect]
     Active Substance: DEXAMETHASONE
     Indication: Disease recurrence
  6. DEXAMETHASONE [Suspect]
     Active Substance: DEXAMETHASONE
     Indication: Uveitis
  7. ATROPINE [Concomitant]
     Active Substance: ATROPINE
     Indication: Uveitis
     Dosage: UNK
     Route: 061
  8. COSOPT [Concomitant]
     Active Substance: DORZOLAMIDE HYDROCHLORIDE\TIMOLOL MALEATE
     Indication: Uveitis
     Dosage: UNK
     Route: 061

REACTIONS (3)
  - Retinal occlusive vasculitis [Recovering/Resolving]
  - Viral uveitis [Recovering/Resolving]
  - Cytomegalovirus chorioretinitis [Recovering/Resolving]
